FAERS Safety Report 6028489-5 (Version None)
Quarter: 2008Q4

REPORT INFORMATION
  Report Type: 
  Country: None (occurrence: None)
  Receive Date: 20081230
  Receipt Date: 20081215
  Transmission Date: 20090506
  Serious: Yes (Hospitalization)
  Sender: FDA-Public Use
  Company Number: 2008-188715-NL

PATIENT
  Age: 72 Year
  Sex: Female

DRUGS (10)
  1. MIRTAZAPINE [Suspect]
     Dosage: 15 MG QD ORAL
     Route: 048
     Dates: end: 20081119
  2. CLORAZEPATE DIPOTASSIUM [Suspect]
     Dosage: 25 MG ORAL
     Route: 048
  3. HYDROXYZINE HYDROCHLORIDE [Suspect]
     Dosage: 25 MG QD ORAL
     Route: 048
  4. COAPROVEL [Suspect]
     Dosage: 1 DF ORAL
     Route: 048
  5. MEPRONIZINE [Suspect]
     Dosage: 1 DF QD ORAL
     Route: 048
     Dates: end: 20081119
  6. PREDNISONE TAB [Concomitant]
  7. LEVOTHYROXINE SODIUM [Concomitant]
  8. ALFACALCIDOL [Concomitant]
  9. REPAGLINIDE [Concomitant]
  10. CACIT [Concomitant]

REACTIONS (14)
  - ANOREXIA [None]
  - ASTHENIA [None]
  - BLOOD SODIUM INCREASED [None]
  - DEHYDRATION [None]
  - DYSSTASIA [None]
  - FACIAL PALSY [None]
  - FALL [None]
  - HYPERCALCAEMIA [None]
  - INCOHERENT [None]
  - MALAISE [None]
  - MUSCULAR WEAKNESS [None]
  - ORTHOSTATIC HYPOTENSION [None]
  - PSYCHOMOTOR RETARDATION [None]
  - RENAL FAILURE ACUTE [None]
